FAERS Safety Report 7690779-8 (Version None)
Quarter: 2011Q3

REPORT INFORMATION
  Report Type: 
  Country: None (occurrence: None)
  Receive Date: 20110816
  Receipt Date: 20110816
  Transmission Date: 20111222
  Serious: No
  Sender: FDA-Public Use
  Company Number: None

PATIENT
  Sex: Male
  Weight: 54.4316 kg

DRUGS (2)
  1. FLOMAX [Suspect]
     Indication: DYSURIA
     Dosage: 0.4 MG 2XDAY ORAL - 047
     Route: 048
     Dates: start: 20100101, end: 20110809
  2. FLOMAX [Suspect]
     Indication: PROSTATIC DISORDER
     Dosage: 0.4 MG 2XDAY ORAL - 047
     Route: 048
     Dates: start: 20100101, end: 20110809

REACTIONS (6)
  - HEADACHE [None]
  - BACK PAIN [None]
  - DYSURIA [None]
  - PRODUCT SUBSTITUTION ISSUE [None]
  - PAIN [None]
  - POLLAKIURIA [None]
